FAERS Safety Report 18502877 (Version 1)
Quarter: 2020Q4

REPORT INFORMATION
  Report Type: Spontaneous
  Country: US (occurrence: US)
  Receive Date: 20201113
  Receipt Date: 20201113
  Transmission Date: 20210114
  Serious: Yes (Hospitalization, Other)
  Sender: FDA-Public Use
  Company Number: US-PURDUE-USA-2020-0176291

PATIENT
  Sex: Female

DRUGS (5)
  1. HYDROCODONE BITARTRATE (SIMILAR TO NDA 206627) [Suspect]
     Active Substance: HYDROCODONE BITARTRATE
     Indication: BACK PAIN
  2. HYDROCODONE BITARTRATE AND ACETAMINOPHEN [Suspect]
     Active Substance: ACETAMINOPHEN\HYDROCODONE BITARTRATE
     Indication: BACK PAIN
     Dosage: 5-325
     Route: 048
     Dates: start: 20191209
  3. HYDROCODONE BITARTRATE AND ACETAMINOPHEN [Suspect]
     Active Substance: ACETAMINOPHEN\HYDROCODONE BITARTRATE
     Indication: ARTHRALGIA
     Dosage: 10-325
     Route: 048
  4. HYDROCODONE BITARTRATE (SIMILAR TO NDA 206627) [Suspect]
     Active Substance: HYDROCODONE BITARTRATE
     Indication: ARTHRALGIA
     Dosage: 10-325
     Route: 048
     Dates: start: 20190208
  5. LORAZEPAM. [Suspect]
     Active Substance: LORAZEPAM
     Indication: ANXIETY
     Dosage: 0.5 MG, UNK
     Route: 065

REACTIONS (16)
  - Drug abuse [Unknown]
  - Somnolence [Unknown]
  - Anxiety [Unknown]
  - Drug dependence [Unknown]
  - Balance disorder [Unknown]
  - Fall [Unknown]
  - Discomfort [Unknown]
  - Dental restoration failure [Unknown]
  - Paranoia [Unknown]
  - Contusion [Unknown]
  - Head injury [Unknown]
  - Memory impairment [Unknown]
  - Diarrhoea [Unknown]
  - Constipation [Unknown]
  - Insomnia [Unknown]
  - Drug tolerance [Unknown]

NARRATIVE: CASE EVENT DATE: 2019
